FAERS Safety Report 5740656-4 (Version None)
Quarter: 2008Q2

REPORT INFORMATION
  Report Type: 
  Country: None (occurrence: None)
  Receive Date: 20080516
  Receipt Date: 20080515
  Transmission Date: 20081010
  Serious: Yes (Hospitalization)
  Sender: FDA-Public Use
  Company Number: B0520501A

PATIENT
  Age: 50 Year
  Sex: Male

DRUGS (2)
  1. SAWACILLIN [Suspect]
     Dosage: 1000MG TWICE PER DAY
     Route: 048
  2. PARIET [Suspect]
     Dosage: 2TAB TWICE PER DAY
     Route: 048

REACTIONS (6)
  - ANOREXIA [None]
  - C-REACTIVE PROTEIN INCREASED [None]
  - LYMPHOMA [None]
  - MALAISE [None]
  - WEIGHT DECREASED [None]
  - WHITE BLOOD CELL COUNT INCREASED [None]
